FAERS Safety Report 4630309-8 (Version None)
Quarter: 2005Q2

REPORT INFORMATION
  Report Type: 
  Country: None (occurrence: None)
  Receive Date: 20050405
  Receipt Date: 20050405
  Transmission Date: 20051028
  Serious: No
  Sender: FDA-Public Use
  Company Number: None

PATIENT

DRUGS (1)
  1. TAXOL [Suspect]
     Dosage: 352 MG
     Dates: start: 20050317, end: 20050317

REACTIONS (8)
  - ARTHRALGIA [None]
  - ASTHENIA [None]
  - BACTERIA BLOOD IDENTIFIED [None]
  - DIFFICULTY IN WALKING [None]
  - DYSURIA [None]
  - EXTRADURAL ABSCESS [None]
  - PAIN [None]
  - PAIN IN EXTREMITY [None]
